FAERS Safety Report 8585329-8 (Version None)
Quarter: 2012Q3

REPORT INFORMATION
  Report Type: 
  Country: None (occurrence: None)
  Receive Date: 20120810
  Receipt Date: 20120806
  Transmission Date: 20120928
  Serious: Yes (Hospitalization)
  Sender: FDA-Public Use
  Company Number: FR-PFIZER INC-2012190203

PATIENT
  Age: 73 Year
  Sex: Male

DRUGS (15)
  1. ACETAMINOPHEN [Suspect]
     Dosage: 1 G, 1X/DAY
     Route: 048
     Dates: start: 20120711, end: 20120717
  2. LOVENOX [Concomitant]
     Dosage: UNK
     Dates: start: 20120707
  3. ACUPAN [Suspect]
     Dosage: 20 MG, 1X/DAY
     Route: 042
     Dates: start: 20120714, end: 20120724
  4. TAMSULOSIN HCL [Concomitant]
  5. NICOBION [Concomitant]
     Dosage: UNK
     Dates: start: 20120707
  6. IMIPENEM AND CILASTATIN SODIUM [Suspect]
     Dosage: 500 MG, 3X/DAY
     Route: 042
     Dates: start: 20120704, end: 20120707
  7. TENORMIN [Suspect]
     Dosage: 100 MG, 1X/DAY
     Route: 048
     Dates: start: 20120707, end: 20120711
  8. NOVORAPID [Concomitant]
     Dosage: UNK
     Dates: start: 20120711
  9. PANTOPRAZOLE SODIUM [Suspect]
     Dosage: 40 MG, 1X/DAY
     Route: 048
     Dates: start: 20120707, end: 20120711
  10. OFLOXACIN [Suspect]
     Dosage: 200 MG, 2X/DAY
     Route: 042
     Dates: start: 20120709, end: 20120711
  11. CORDARONE [Concomitant]
     Dosage: UNK
     Dates: start: 20120707
  12. TAZOBACTAM [Suspect]
     Dosage: 4 G, 3X/DAY
     Route: 042
     Dates: start: 20120709, end: 20120713
  13. PLAVIX [Suspect]
     Dosage: 75 MG, 1X/DAY
     Route: 048
     Dates: start: 20120707, end: 20120707
  14. CIPROFLOXACIN HYDROCHLORIDE [Suspect]
     Dosage: 500 MG, 2X/DAY
     Route: 042
     Dates: start: 20120713, end: 20120723
  15. LASIX [Concomitant]

REACTIONS (1)
  - LEUKOCYTOCLASTIC VASCULITIS [None]
